FAERS Safety Report 6399526-3 (Version None)
Quarter: 2009Q4

REPORT INFORMATION
  Report Type: 
  Country: None (occurrence: None)
  Receive Date: 20091014
  Receipt Date: 20091006
  Transmission Date: 20100525
  Serious: Yes (Death)
  Sender: FDA-Public Use
  Company Number: JP-BAYER-200910046BYL

PATIENT
  Age: 55 Year
  Sex: Female

DRUGS (15)
  1. NEXAVAR [Suspect]
     Indication: RENAL CELL CARCINOMA STAGE IV
     Dosage: TOTAL DAILY DOSE: 800 MG  UNIT DOSE: 200 MG
     Route: 048
     Dates: start: 20080821, end: 20080831
  2. NEXAVAR [Suspect]
     Dosage: AS USED: 400 MG  UNIT DOSE: 200 MG
     Route: 048
     Dates: start: 20080901, end: 20080902
  3. NEXAVAR [Suspect]
     Dosage: AS USED: 400 MG  UNIT DOSE: 200 MG
     Route: 048
     Dates: start: 20080911, end: 20081202
  4. CONSTAN [Concomitant]
     Route: 048
     Dates: end: 20080904
  5. CALCIUM LACTATE [Concomitant]
     Route: 048
     Dates: end: 20081204
  6. HYPEN [Concomitant]
     Route: 048
  7. MUCOSTA [Concomitant]
     Route: 048
     Dates: end: 20081023
  8. MAGMITT [Concomitant]
     Route: 048
     Dates: start: 20080901
  9. MAGMITT [Concomitant]
     Route: 048
     Dates: end: 20080831
  10. POLARAMINE [Concomitant]
     Route: 048
     Dates: end: 20081024
  11. CLARITIN REDITABS [Concomitant]
     Route: 048
     Dates: end: 20081024
  12. DEPAS [Concomitant]
     Route: 048
  13. LUDIOMIL [Concomitant]
     Route: 048
  14. MYSLEE [Concomitant]
     Route: 048
     Dates: start: 20080918
  15. LULLAN [Concomitant]
     Route: 048

REACTIONS (5)
  - HYPOPHOSPHATAEMIA [None]
  - INTESTINAL OBSTRUCTION [None]
  - MALIGNANT NEOPLASM PROGRESSION [None]
  - PALMAR-PLANTAR ERYTHRODYSAESTHESIA SYNDROME [None]
  - RENAL CELL CARCINOMA [None]
